FAERS Safety Report 13917738 (Version 1)
Quarter: 2017Q3

REPORT INFORMATION
  Report Type: Spontaneous
  Country: ZA (occurrence: ZA)
  Receive Date: 20170829
  Receipt Date: 20170829
  Transmission Date: 20171127
  Serious: Yes (Other)
  Sender: FDA-Public Use
  Company Number: ZA-LUPIN (EUROPE) LIMITED-2017-04813

PATIENT
  Sex: Male

DRUGS (8)
  1. PREXUM [Suspect]
     Active Substance: PERINDOPRIL ERBUMINE
     Indication: HYPERTENSION
     Dosage: 5 MG, QD
     Route: 048
  2. CARLOC [Suspect]
     Active Substance: CARVEDILOL
     Indication: HYPERTENSION
     Dosage: 25 MG, QD
     Route: 048
  3. ALDACTONE [Suspect]
     Active Substance: SPIRONOLACTONE
     Indication: HYPERTENSION
     Dosage: 25 MG, QD
     Route: 048
  4. PURESIS [Suspect]
     Active Substance: FUROSEMIDE
     Indication: DIURETIC THERAPY
     Dosage: 40 MG, QD
     Route: 048
  5. CARDUGEN 4MG [Suspect]
     Active Substance: DOXAZOSIN MESYLATE
     Indication: PROSTATIC DISORDER
     Dosage: 4 MG, QD
     Route: 048
  6. SIMVACOR [Suspect]
     Active Substance: SIMVASTATIN
     Indication: BLOOD CHOLESTEROL ABNORMAL
     Dosage: 20 MG, QD
     Route: 048
  7. FEDALOC SR TABLETS [Suspect]
     Active Substance: NIFEDIPINE
     Dosage: 30 MG, QD
     Route: 048
  8. PURGOXIN [Suspect]
     Active Substance: DIGOXIN
     Indication: ARRHYTHMIA
     Dosage: 0.25 MG, QD
     Route: 048

REACTIONS (1)
  - Cerebrovascular accident [Unknown]
